FAERS Safety Report 17138072 (Version 1)
Quarter: 2019Q4

REPORT INFORMATION
  Report Type: Spontaneous
  Country: FR (occurrence: FR)
  Receive Date: 20191211
  Receipt Date: 20191211
  Transmission Date: 20200122
  Serious: Yes (Other)
  Sender: FDA-Public Use
  Company Number: FR-BEH-2019110420

PATIENT
  Age: 27 Year
  Sex: Female
  Weight: 87 kg

DRUGS (4)
  1. SYMBICORT [Concomitant]
     Active Substance: BUDESONIDE\FORMOTEROL FUMARATE DIHYDRATE
  2. RHOPHYLAC [Suspect]
     Active Substance: HUMAN RHO(D) IMMUNE GLOBULIN
     Indication: ALLOIMMUNISATION
     Dosage: 1 DOSAGE FORM, QD
     Route: 030
     Dates: start: 20191003, end: 20191003
  3. RHOPHYLAC [Suspect]
     Active Substance: HUMAN RHO(D) IMMUNE GLOBULIN
     Indication: ALLOIMMUNISATION
     Dosage: 1 DOSAGE FORM, QD
     Route: 030
     Dates: start: 20191003, end: 20191003
  4. MAGNESIUM [Concomitant]
     Active Substance: MAGNESIUM

REACTIONS (1)
  - Drug ineffective [Not Recovered/Not Resolved]

NARRATIVE: CASE EVENT DATE: 20191107
